FAERS Safety Report 8817165 (Version 1)
Quarter: 2012Q4

REPORT INFORMATION
  Report Type: Spontaneous
  Country: US (occurrence: None)
  Receive Date: 20121003
  Receipt Date: 20121003
  Transmission Date: 20130627
  Serious: No
  Sender: FDA-Public Use
  Company Number: None

PATIENT
  Age: 43 Year
  Sex: Female

DRUGS (2)
  1. FLUCONAZOLE [Suspect]
     Route: 048
  2. FLUCONAZOLE [Suspect]
     Route: 048

REACTIONS (4)
  - Vulvovaginal mycotic infection [None]
  - Condition aggravated [None]
  - Vaginal haemorrhage [None]
  - Vaginal ulceration [None]
